FAERS Safety Report 13256562 (Version 1)
Quarter: 2017Q1

REPORT INFORMATION
  Report Type: Spontaneous
  Country: US (occurrence: US)
  Receive Date: 20170220
  Receipt Date: 20170220
  Transmission Date: 20170428
  Serious: Yes (Other)
  Sender: FDA-Public Use
  Company Number: None

PATIENT
  Age: 8 Year
  Sex: Female
  Weight: 22.5 kg

DRUGS (3)
  1. MULTI-VITAMINS [Concomitant]
  2. AMOXICILLIN. [Suspect]
     Active Substance: AMOXICILLIN
     Indication: OROPHARYNGEAL PAIN
     Dosage: ?          QUANTITY:5 ML;?
     Route: 048
     Dates: start: 20170211, end: 20170214
  3. ZYRTEC [Concomitant]
     Active Substance: CETIRIZINE HYDROCHLORIDE

REACTIONS (6)
  - Decreased appetite [None]
  - Abdominal pain upper [None]
  - Appendicitis [None]
  - Oropharyngeal pain [None]
  - Rash erythematous [None]
  - Abdominal pain [None]

NARRATIVE: CASE EVENT DATE: 20170215
